FAERS Safety Report 16776038 (Version 2)
Quarter: 2019Q3

REPORT INFORMATION
  Report Type: Spontaneous
  Country: FR (occurrence: FR)
  Receive Date: 20190905
  Receipt Date: 20190927
  Transmission Date: 20191005
  Serious: No
  Sender: FDA-Public Use
  Company Number: FR-BRISTOL-MYERS SQUIBB COMPANY-BMS-2019-084356

PATIENT
  Age: 77 Year
  Sex: Female
  Weight: 46 kg

DRUGS (4)
  1. OPDIVO [Suspect]
     Active Substance: NIVOLUMAB
     Indication: PRODUCT USED FOR UNKNOWN INDICATION
     Dosage: 50TH COURSE
     Route: 065
     Dates: start: 20190802
  2. DIPROSONE NEOMYCINE [Concomitant]
     Indication: PRODUCT USED FOR UNKNOWN INDICATION
     Route: 065
  3. CORTICOSTEROID NOS [Concomitant]
     Active Substance: CORTICOSTEROID NOS
     Indication: PRODUCT USED FOR UNKNOWN INDICATION
     Route: 065
  4. OPDIVO [Suspect]
     Active Substance: NIVOLUMAB
     Indication: RENAL CANCER
     Dosage: 240 MILLIGRAM, Q2WK
     Route: 065
     Dates: start: 20170912

REACTIONS (2)
  - Rash maculo-papular [Recovered/Resolved]
  - Eruptive pseudoangiomatosis [Recovered/Resolved]

NARRATIVE: CASE EVENT DATE: 20190802
